FAERS Safety Report 5938375-4 (Version None)
Quarter: 2008Q4

REPORT INFORMATION
  Report Type: 
  Country: None (occurrence: None)
  Receive Date: 20081103
  Receipt Date: 20081029
  Transmission Date: 20090506
  Serious: Yes (Hospitalization)
  Sender: FDA-Public Use
  Company Number: FR-BRISTOL-MYERS SQUIBB COMPANY-14389084

PATIENT
  Age: 41 Year
  Sex: Male

DRUGS (7)
  1. REYATAZ [Suspect]
     Dates: start: 20080111, end: 20080517
  2. TRUVADA [Suspect]
     Dates: start: 20050501, end: 20080517
  3. RIFATER [Suspect]
     Dates: start: 20080101, end: 20080517
  4. MYAMBUTOL [Suspect]
     Dates: start: 20080101, end: 20080517
  5. MOVICOL [Concomitant]
  6. SPAGULAX [Concomitant]
  7. ROCEPHIN [Concomitant]

REACTIONS (2)
  - LUNG DISORDER [None]
  - PANCREATITIS ACUTE [None]
